FAERS Safety Report 22153530 (Version 2)
Quarter: 2023Q2

REPORT INFORMATION
  Report Type: Spontaneous
  Country: US (occurrence: None)
  Receive Date: 20230330
  Receipt Date: 20230509
  Transmission Date: 20230721
  Serious: No
  Sender: FDA-Public Use
  Company Number: 2023A056276

PATIENT
  Age: 51 Year
  Sex: Male
  Weight: 81.6 kg

DRUGS (1)
  1. BYDUREON BCISE [Suspect]
     Active Substance: EXENATIDE
     Indication: Type 2 diabetes mellitus
     Route: 058
     Dates: start: 2014

REACTIONS (6)
  - Glycosylated haemoglobin increased [Unknown]
  - Poor quality sleep [Unknown]
  - Body height decreased [Unknown]
  - Weight decreased [Unknown]
  - Asthenia [Unknown]
  - Product administration error [Unknown]

NARRATIVE: CASE EVENT DATE: 20140101
